FAERS Safety Report 10068363 (Version 1)
Quarter: 2014Q2

REPORT INFORMATION
  Report Type: Spontaneous
  Country: GB (occurrence: GB)
  Receive Date: 20140409
  Receipt Date: 20140409
  Transmission Date: 20141212
  Serious: Yes (Other)
  Sender: FDA-Public Use
  Company Number: GB-PFIZER INC-2014097519

PATIENT
  Age: 62 Year
  Sex: Female
  Weight: 77 kg

DRUGS (3)
  1. ESTRADIOL [Suspect]
     Dosage: UNK
     Route: 067
  2. DOUBLEBASE [Concomitant]
     Dosage: UNK
     Dates: start: 20131030, end: 20131225
  3. LEVOTHYROXINE [Concomitant]
     Dosage: UNK
     Dates: start: 20131030, end: 20140122

REACTIONS (1)
  - Cough [Recovered/Resolved]
